FAERS Safety Report 19026501 (Version 1)
Quarter: 2021Q1

REPORT INFORMATION
  Report Type: Report from Study
  Country: US (occurrence: US)
  Receive Date: 20210318
  Receipt Date: 20210318
  Transmission Date: 20210420
  Serious: Yes (Hospitalization)
  Sender: FDA-Public Use
  Company Number: US-PACIRA-2021000201

PATIENT
  Age: 66 Year
  Sex: Male
  Weight: 100 kg

DRUGS (13)
  1. BUPIVACAINE. [Suspect]
     Active Substance: BUPIVACAINE
     Indication: POSTOPERATIVE ANALGESIA
     Dosage: 2018; 30ML
     Route: 065
  2. CELEBREX [Concomitant]
     Active Substance: CELECOXIB
     Indication: PREOPERATIVE CARE
     Dosage: NOT PROVIDED
     Route: 065
  3. EXPAREL [Suspect]
     Active Substance: BUPIVACAINE
     Indication: POSTOPERATIVE ANALGESIA
     Dosage: 2018 20ML EXPAREL AND 40ML SALINE TOTAL VOLUME 60ML
     Route: 065
  4. SUBLIMAZE [Concomitant]
     Active Substance: FENTANYL CITRATE
     Indication: INTRAOPERATIVE CARE
     Dosage: 25 MCG 50 MCG/ML MCG (PACU)
     Route: 042
  5. NORCO 5 [Concomitant]
     Indication: POSTOPERATIVE ANALGESIA
     Dosage: 1?2 TABLET, Q4H PRN, 1?2 TABLETS BY MOUTH EVERY 4 (FOUR) HOURS AS NEEDED AT DISCHARGE
     Route: 048
  6. NORCO [Concomitant]
     Active Substance: ACETAMINOPHEN\HYDROCODONE BITARTRATE
     Indication: POSTOPERATIVE ANALGESIA
     Dosage: 3:46AM, 7:19AM, 10:29AM??1 TABLET 1
     Route: 065
     Dates: start: 20180926
  7. SALINE [Concomitant]
     Active Substance: SODIUM CHLORIDE
     Indication: POSTOPERATIVE ANALGESIA
     Dosage: 2018; 40ML WITH 20ML EXPAREL. TOTAL VOLUME 60ML
     Route: 065
  8. SUBLIMAZE [Concomitant]
     Active Substance: FENTANYL CITRATE
     Indication: INTRAOPERATIVE CARE
     Dosage: NOT REPORTED
     Route: 065
  9. TYLENOL [Concomitant]
     Active Substance: ACETAMINOPHEN
     Indication: INTRAOPERATIVE CARE
     Dosage: NOT REPORTED
     Route: 042
  10. NORCO 5 [Concomitant]
     Indication: POSTOPERATIVE ANALGESIA
     Dosage: 10:43AM, 1:41PM, 6:44PM??1 TABLET 1
     Route: 065
     Dates: start: 20180925
  11. OXYCONTIN [Concomitant]
     Active Substance: OXYCODONE HYDROCHLORIDE
     Indication: POSTOPERATIVE ANALGESIA
     Dosage: 12 HR??9:01PM
     Route: 065
     Dates: start: 20180925
  12. NORCO 5 [Concomitant]
     Indication: POSTOPERATIVE ANALGESIA
     Dosage: 12:07AM??1 TABLET 1
     Route: 065
     Dates: start: 20180926
  13. MIDAZOLAM. [Concomitant]
     Active Substance: MIDAZOLAM
     Indication: INTRAOPERATIVE CARE
     Dosage: NOT REPORTED
     Route: 065

REACTIONS (1)
  - Osteoarthritis [Unknown]
